FAERS Safety Report 19941959 (Version 1)
Quarter: 2021Q4

REPORT INFORMATION
  Report Type: Spontaneous
  Country: ES (occurrence: ES)
  Receive Date: 20211011
  Receipt Date: 20211011
  Transmission Date: 20220303
  Serious: Yes (Other)
  Sender: FDA-Public Use
  Company Number: None

PATIENT
  Age: 62 Year
  Sex: Female

DRUGS (1)
  1. IOPAMIRO [Suspect]
     Active Substance: IOPAMIDOL
     Indication: Computerised tomogram abdomen
     Dosage: UNK UNK, SINGLE
     Route: 042
     Dates: start: 20201215, end: 20201215

REACTIONS (1)
  - Sialoadenitis [Recovered/Resolved]

NARRATIVE: CASE EVENT DATE: 20201215
